FAERS Safety Report 12396093 (Version 1)
Quarter: 2016Q2

REPORT INFORMATION
  Report Type: Spontaneous
  Country: TW (occurrence: TW)
  Receive Date: 20160524
  Receipt Date: 20160524
  Transmission Date: 20160815
  Serious: Yes (Hospitalization, Other)
  Sender: FDA-Public Use
  Company Number: TW-ALEMBIC PHARMACUETICALS LIMITED-2016SCAL000375

PATIENT

DRUGS (3)
  1. LITHIUM CARBONATE. [Suspect]
     Active Substance: LITHIUM CARBONATE
     Indication: BIPOLAR I DISORDER
     Dosage: 1200 MG, QD
  2. TRIHEXYPHENIDYL [Concomitant]
     Active Substance: TRIHEXYPHENIDYL
     Indication: BIPOLAR I DISORDER
     Dosage: 4 MG, QD
  3. HALOPERIDOL. [Concomitant]
     Active Substance: HALOPERIDOL
     Indication: BIPOLAR I DISORDER
     Dosage: 10 MG, QD

REACTIONS (3)
  - Hypothyroidism [Recovered/Resolved]
  - Basedow^s disease [Recovered/Resolved]
  - Mania [Recovered/Resolved]
